FAERS Safety Report 5738680-0 (Version None)
Quarter: 2008Q2

REPORT INFORMATION
  Report Type: 
  Country: None (occurrence: None)
  Receive Date: 20080513
  Receipt Date: 20080504
  Transmission Date: 20081010
  Serious: Yes (Hospitalization)
  Sender: FDA-Public Use
  Company Number: ALL1-2008-00888

PATIENT
  Age: 57 Year
  Sex: Female
  Weight: 52.2 kg

DRUGS (11)
  1. VYVANSE [Suspect]
     Indication: ATTENTION DEFICIT/HYPERACTIVITY DISORDER
     Dosage: SEE IMAGE
     Route: 048
     Dates: start: 20080201
  2. VYVANSE [Suspect]
     Indication: ATTENTION DEFICIT/HYPERACTIVITY DISORDER
     Dosage: SEE IMAGE
     Route: 048
     Dates: start: 20080201
  3. SYNTHROID [Concomitant]
  4. PROZAC [Concomitant]
  5. AVAPRO [Concomitant]
  6. HYDROCODONE (HYDROCODONE) [Concomitant]
  7. LUNESTA [Concomitant]
  8. XANAX [Concomitant]
  9. COQ-10 (UBIDECARENONE) [Concomitant]
  10. VITAMIN B COMP (CYANOCOBALAMIN, PYRIDOXINE HYDROCHLORIDE, THIAMINE HYD [Concomitant]
  11. MULTIVITAMIN [Concomitant]

REACTIONS (6)
  - BRUXISM [None]
  - HEADACHE [None]
  - LIVER FUNCTION TEST ABNORMAL [None]
  - OFF LABEL USE [None]
  - TONGUE BITING [None]
  - WRONG TECHNIQUE IN DRUG USAGE PROCESS [None]
